FAERS Safety Report 7247470-1 (Version None)
Quarter: 2011Q1

REPORT INFORMATION
  Report Type: 
  Country: None (occurrence: None)
  Receive Date: 20110127
  Receipt Date: 20110127
  Transmission Date: 20110831
  Serious: Yes (Congenital Anomaly)
  Sender: FDA-Public Use
  Company Number: US-AMGEN-USASP2010001215

PATIENT
  Age: 9 Week

DRUGS (6)
  1. PRENATAL VITAMINS                  /01549301/ [Concomitant]
     Dosage: UNK UNK, QD
     Route: 064
     Dates: start: 20090625, end: 20100409
  2. INFLUENZA VACCINE [Concomitant]
     Dosage: UNK
     Route: 064
     Dates: start: 20091101, end: 20091101
  3. PREDNISONE [Concomitant]
     Dosage: 5 MG, QD
     Route: 064
     Dates: start: 20090625, end: 20100409
  4. ENBREL [Suspect]
     Indication: RHEUMATOID ARTHRITIS
     Dosage: 50 MG, QWK
     Route: 064
     Dates: start: 20090625, end: 20091221
  5. TYLENOL (CAPLET) [Concomitant]
     Dosage: UNK
     Route: 064
     Dates: start: 20090625, end: 20100122
  6. ENBREL [Suspect]
     Dosage: 50 MG, QWK
     Route: 064
     Dates: start: 20100121, end: 20100904

REACTIONS (1)
  - REFLUX NEPHROPATHY [None]
